FAERS Safety Report 9668062 (Version 1)
Quarter: 2013Q4

REPORT INFORMATION
  Report Type: Spontaneous
  Country: TR (occurrence: TR)
  Receive Date: 20131104
  Receipt Date: 20131104
  Transmission Date: 20140711
  Serious: Yes (Other)
  Sender: FDA-Public Use
  Company Number: PHHY2013TR121934

PATIENT
  Age: 12 Year
  Sex: Female

DRUGS (2)
  1. FLUOXETINE [Suspect]
     Indication: MAJOR DEPRESSION
     Dosage: 10 MG/DAY
  2. FLUOXETINE [Suspect]
     Dosage: 20 MG/DAY

REACTIONS (11)
  - Mania [Recovered/Resolved]
  - Nervousness [Recovered/Resolved]
  - Aggression [Recovered/Resolved]
  - Logorrhoea [Recovered/Resolved]
  - Insomnia [Recovered/Resolved]
  - Libido increased [Recovered/Resolved]
  - Irritability [Recovered/Resolved]
  - Grandiosity [Recovered/Resolved]
  - Psychomotor hyperactivity [Recovered/Resolved]
  - Tachyphrenia [Recovered/Resolved]
  - Drug withdrawal syndrome [Recovered/Resolved]
